FAERS Safety Report 5153153-4 (Version None)
Quarter: 2006Q4

REPORT INFORMATION
  Report Type: 
  Country: None (occurrence: None)
  Receive Date: 20061117
  Receipt Date: 20061116
  Transmission Date: 20070319
  Serious: Yes (Hospitalization)
  Sender: FDA-Public Use
  Company Number: LA-06-027

PATIENT
  Age: 33 Year
  Sex: Female

DRUGS (1)
  1. ZOVIRAX [Suspect]
     Indication: COUGH
     Dosage: 800MG THREE TIMES PER DAY
     Route: 048
     Dates: start: 20060614, end: 20060705

REACTIONS (6)
  - AGGRESSION [None]
  - AGITATION [None]
  - HALLUCINATION [None]
  - INSOMNIA [None]
  - PERSECUTORY DELUSION [None]
  - PSYCHOTIC DISORDER [None]
